FAERS Safety Report 8001194-1 (Version None)
Quarter: 2011Q4

REPORT INFORMATION
  Report Type: 
  Country: None (occurrence: None)
  Receive Date: 20111219
  Receipt Date: 20111205
  Transmission Date: 20120403
  Serious: Yes (Hospitalization, Other)
  Sender: FDA-Public Use
  Company Number: 2011MA017218

PATIENT
  Sex: Female
  Weight: 82.5547 kg

DRUGS (20)
  1. ASPIRIN [Concomitant]
  2. LISINOPRIL [Concomitant]
  3. LEVAQUIN [Concomitant]
  4. MAXZIDE [Concomitant]
  5. CIPROFLOXACIN [Concomitant]
  6. HYDROCODONE [Concomitant]
  7. MEGESTROL ACETATE [Concomitant]
  8. VISTARIL [Concomitant]
  9. ADVAIR DISKUS 100/50 [Concomitant]
  10. JANTOREN [Concomitant]
  11. KAYEXALATE [Concomitant]
  12. DIGOXIN [Suspect]
     Indication: PRODUCT USED FOR UNKNOWN INDICATION
     Dosage: 0.25 MG;PO
     Route: 048
     Dates: start: 20010910, end: 20080909
  13. APAP TAB [Concomitant]
  14. NSAID [Concomitant]
  15. COUMADIN [Concomitant]
  16. ALPRAZOLAM [Concomitant]
  17. LEVALBUTEROL HCL [Concomitant]
  18. ANZEMET [Concomitant]
  19. XANAX [Concomitant]
  20. HEPARIN [Concomitant]

REACTIONS (71)
  - HYPERKALAEMIA [None]
  - TONSILLITIS [None]
  - TACHYCARDIA [None]
  - HEADACHE [None]
  - BACK PAIN [None]
  - SPINAL OSTEOARTHRITIS [None]
  - HYPERTENSION [None]
  - CHEST DISCOMFORT [None]
  - HYPOAESTHESIA [None]
  - VOMITING [None]
  - HAEMOPTYSIS [None]
  - RHINITIS [None]
  - INFLUENZA [None]
  - CHEST PAIN [None]
  - BRONCHIECTASIS [None]
  - HEMIPLEGIA [None]
  - FOOD POISONING [None]
  - COUGH [None]
  - SINUS HEADACHE [None]
  - INFLUENZA LIKE ILLNESS [None]
  - DYSPNOEA [None]
  - OTITIS MEDIA [None]
  - OTITIS EXTERNA [None]
  - PHARYNGITIS [None]
  - MUSCLE SPASMS [None]
  - RASH [None]
  - NAUSEA [None]
  - ORTHOSTATIC HYPOTENSION [None]
  - NECK PAIN [None]
  - PRODUCTIVE COUGH [None]
  - ASTHENIA [None]
  - HAEMODYNAMIC INSTABILITY [None]
  - SYNCOPE [None]
  - PYREXIA [None]
  - VIRAL INFECTION [None]
  - TONSILLECTOMY [None]
  - VISION BLURRED [None]
  - ISCHAEMIA [None]
  - ARTHRITIS [None]
  - PNEUMONIA [None]
  - HEAD INJURY [None]
  - GLIOSIS [None]
  - ASTHMA [None]
  - BRONCHITIS [None]
  - NEUTROPENIA [None]
  - CONSTIPATION [None]
  - FALL [None]
  - LOWER LIMB FRACTURE [None]
  - OSTEOARTHRITIS [None]
  - PULMONARY EMBOLISM [None]
  - HYPERLIPIDAEMIA [None]
  - ACUTE CORONARY SYNDROME [None]
  - RENAL FAILURE [None]
  - DEHYDRATION [None]
  - DECREASED APPETITE [None]
  - OSTEOPENIA [None]
  - SUBCUTANEOUS HAEMATOMA [None]
  - OROPHARYNGEAL PAIN [None]
  - ATRIAL FIBRILLATION [None]
  - CARDIOVERSION [None]
  - SINUSITIS [None]
  - PAIN IN EXTREMITY [None]
  - DIARRHOEA [None]
  - PAIN [None]
  - TYPE 2 DIABETES MELLITUS [None]
  - TUBERCULOSIS [None]
  - ARTHRALGIA [None]
  - MALAISE [None]
  - LARYNGITIS [None]
  - CHRONIC OBSTRUCTIVE PULMONARY DISEASE [None]
  - CHILLS [None]
